FAERS Safety Report 6339581-X (Version None)
Quarter: 2009Q3

REPORT INFORMATION
  Report Type: 
  Country: None (occurrence: None)
  Receive Date: 20090903
  Receipt Date: 20090122
  Transmission Date: 20100115
  Serious: No
  Sender: FDA-Public Use
  Company Number: US-ALLERGAN-0900795US

PATIENT
  Sex: Female

DRUGS (1)
  1. ELIMITE [Suspect]
     Indication: DRUG USE FOR UNKNOWN INDICATION
     Dosage: UNK, UNK
     Route: 061

REACTIONS (2)
  - APPLICATION SITE IRRITATION [None]
  - APPLICATION SITE RASH [None]
